FAERS Safety Report 9914142 (Version 2)
Quarter: 2014Q1

REPORT INFORMATION
  Report Type: Spontaneous
  Country: FR (occurrence: FR)
  Receive Date: 20140220
  Receipt Date: 20140226
  Transmission Date: 20141002
  Serious: Yes (Life-Threatening, Hospitalization)
  Sender: FDA-Public Use
  Company Number: FR-PFIZER INC-2014044058

PATIENT
  Age: 22 Year
  Sex: Female

DRUGS (3)
  1. AMLOR [Suspect]
     Dosage: 225 MG, SINGLE
     Route: 048
     Dates: start: 20140123, end: 20140123
  2. CRESTOR [Suspect]
     Dosage: 450 MG, SINGLE
     Route: 048
     Dates: start: 20140123, end: 20140123
  3. EUCREAS [Suspect]
     Dosage: 10 DF, SINGLE
     Route: 048
     Dates: start: 20140123, end: 20140123

REACTIONS (5)
  - Overdose [Recovered/Resolved]
  - Hypotension [Recovered/Resolved with Sequelae]
  - Renal failure acute [Recovered/Resolved]
  - Lactic acidosis [Recovered/Resolved with Sequelae]
  - Shock [Unknown]
